FAERS Safety Report 17305708 (Version 2)
Quarter: 2020Q3

REPORT INFORMATION
  Report Type: Spontaneous
  Country: US (occurrence: US)
  Receive Date: 20200123
  Receipt Date: 20200709
  Transmission Date: 20201102
  Serious: No
  Sender: FDA-Public Use
  Company Number: US-TEVA-2020-US-1173432

PATIENT
  Age: 30 Year
  Sex: Female

DRUGS (1)
  1. AJOVY [Suspect]
     Active Substance: FREMANEZUMAB-VFRM
     Indication: MIGRAINE
     Dosage: MONTHLY FOR MIGRAINE ?INJECTION SITE: LEFT THIGH
     Dates: start: 20191114

REACTIONS (2)
  - Injection site mass [Unknown]
  - Injection site erythema [Unknown]

NARRATIVE: CASE EVENT DATE: 20191114
